FAERS Safety Report 5287073-1 (Version None)
Quarter: 2007Q2

REPORT INFORMATION
  Report Type: 
  Country: None (occurrence: None)
  Receive Date: 20070404
  Receipt Date: 20070307
  Transmission Date: 20071010
  Serious: Yes (Death, Hospitalization, Other)
  Sender: FDA-Public Use
  Company Number: US-PFIZER INC-2006139078

PATIENT
  Sex: Female
  Weight: 73.5 kg

DRUGS (3)
  1. BEXTRA [Suspect]
     Indication: ARTHRALGIA
     Dates: start: 20020725, end: 20031201
  2. BEXTRA [Suspect]
     Indication: PAIN IN EXTREMITY
  3. BEXTRA [Suspect]

REACTIONS (2)
  - CARDIAC ARREST [None]
  - CARDIAC FAILURE [None]
